FAERS Safety Report 13780546 (Version 3)
Quarter: 2017Q3

REPORT INFORMATION
  Report Type: Spontaneous
  Country: JP (occurrence: JP)
  Receive Date: 20170724
  Receipt Date: 20170816
  Transmission Date: 20171127
  Serious: Yes (Other)
  Sender: FDA-Public Use
  Company Number: JP-ROCHE-1957148

PATIENT
  Age: 9 Year
  Sex: Male
  Weight: 33.9 kg

DRUGS (5)
  1. ACTEMRA [Suspect]
     Active Substance: TOCILIZUMAB
     Indication: STILL^S DISEASE
     Route: 041
     Dates: start: 20160606, end: 20161121
  2. PREDONINE [Concomitant]
     Active Substance: PREDNISOLONE
     Dosage: DOSAGE IS UNCERTAIN.
     Route: 065
     Dates: start: 20161007, end: 20161106
  3. CORTRIL [Concomitant]
     Active Substance: HYDROCORTISONE
     Dosage: DOSAGE IS UNCERTAIN.
     Route: 065
     Dates: start: 20161107, end: 20170529
  4. ACTEMRA [Suspect]
     Active Substance: TOCILIZUMAB
     Indication: STILL^S DISEASE
     Route: 041
     Dates: start: 20161212
  5. PREDONINE [Concomitant]
     Active Substance: PREDNISOLONE
     Dosage: DOSAGE IS UNCERTAIN.
     Route: 065
     Dates: start: 20151130, end: 20160930

REACTIONS (2)
  - Infusion related reaction [Recovered/Resolved]
  - Adrenal insufficiency [Unknown]

NARRATIVE: CASE EVENT DATE: 201609
